FAERS Safety Report 24395176 (Version 1)
Quarter: 2024Q4

REPORT INFORMATION
  Report Type: Spontaneous
  Country: US (occurrence: US)
  Receive Date: 20241004
  Receipt Date: 20241004
  Transmission Date: 20250115
  Serious: No
  Sender: ROCHE
  Company Number: US-ROCHE-10000091687

PATIENT
  Age: 73 Year
  Sex: Female
  Weight: 120.6 kg

DRUGS (16)
  1. AVASTIN [Suspect]
     Active Substance: BEVACIZUMAB
     Indication: Product used for unknown indication
     Route: 065
     Dates: start: 2024
  2. TREPROSTINIL SODIUM [Suspect]
     Active Substance: TREPROSTINIL SODIUM
     Indication: Pulmonary arterial hypertension
     Route: 055
     Dates: start: 20220630
  3. FLUOXETINE HYDROCHLORIDE [Concomitant]
     Active Substance: FLUOXETINE HYDROCHLORIDE
  4. PRED FORTE [Concomitant]
     Active Substance: PREDNISOLONE ACETATE
  5. AMOXICILLIN [Concomitant]
     Active Substance: AMOXICILLIN
  6. TIZANIDINE HYDROCHLORIDE [Concomitant]
     Active Substance: TIZANIDINE HYDROCHLORIDE
  7. ESBRIET [Concomitant]
     Active Substance: PIRFENIDONE
  8. TRAZODONE HCL [Concomitant]
     Active Substance: TRAZODONE HYDROCHLORIDE
  9. CYANOCOBALAMIN [Concomitant]
     Active Substance: CYANOCOBALAMIN
  10. CLONAZEPAM [Concomitant]
     Active Substance: CLONAZEPAM
  11. LASIX [Concomitant]
     Active Substance: FUROSEMIDE
  12. PENTASA [Concomitant]
     Active Substance: MESALAMINE
  13. CALCIUM\CHOLECALCIFEROL [Concomitant]
     Active Substance: CALCIUM\CHOLECALCIFEROL
  14. ALBUTEROL SULFATE [Concomitant]
     Active Substance: ALBUTEROL SULFATE
  15. TRAMADOL HCL [Concomitant]
     Active Substance: TRAMADOL HYDROCHLORIDE
  16. ASPIRIN [Concomitant]
     Active Substance: ASPIRIN

REACTIONS (4)
  - Blood pressure systolic increased [Unknown]
  - Protein urine present [Unknown]
  - Urinary tract infection [Unknown]
  - Dyspnoea [Unknown]
